FAERS Safety Report 6245268-4 (Version None)
Quarter: 2009Q2

REPORT INFORMATION
  Report Type: 
  Country: None (occurrence: None)
  Receive Date: 20090625
  Receipt Date: 20090617
  Transmission Date: 20091009
  Serious: No
  Sender: FDA-Public Use
  Company Number: BE-MERCK-0703BEL00017M

PATIENT
  Age: 28 Year
  Sex: Female
  Weight: 57 kg

DRUGS (11)
  1. FOSAMAX [Suspect]
     Indication: STRESS FRACTURE
     Route: 048
     Dates: start: 20070101, end: 20070316
  2. ASCORBIC ACID [Concomitant]
     Indication: STRESS FRACTURE
     Route: 048
     Dates: end: 20070316
  3. CALCIUM (UNSPECIFIED) [Concomitant]
     Indication: STRESS FRACTURE
     Route: 065
     Dates: end: 20070316
  4. VITAMIN D (UNSPECIFIED) [Concomitant]
     Route: 065
     Dates: end: 20070316
  5. MAGNESIUM OXIDE [Concomitant]
     Route: 048
     Dates: start: 20070723, end: 20071001
  6. PROGESTERONE [Concomitant]
     Route: 048
     Dates: start: 20070723, end: 20071001
  7. FOSFOMYCIN TROMETHAMINE [Concomitant]
     Route: 048
     Dates: start: 20070723, end: 20070723
  8. MICONAZOLE NITRATE [Concomitant]
     Route: 067
     Dates: start: 20070817
  9. ZINC (UNSPECIFIED) [Concomitant]
     Route: 048
     Dates: end: 20070316
  10. FLUOXETINE HYDROCHLORIDE [Concomitant]
     Route: 048
     Dates: end: 20070316
  11. MINERALS (UNSPECIFIED) AND VITAMINS (UNSPECIFIED) [Concomitant]
     Route: 048
     Dates: end: 20070316

REACTIONS (2)
  - DRUG EXPOSURE DURING PREGNANCY [None]
  - OFF LABEL USE [None]
